FAERS Safety Report 6259986-5 (Version None)
Quarter: 2009Q3

REPORT INFORMATION
  Report Type: 
  Country: None (occurrence: None)
  Receive Date: 20090708
  Receipt Date: 20090629
  Transmission Date: 20100115
  Serious: Yes (Death, Hospitalization)
  Sender: FDA-Public Use
  Company Number: FR-CELGENEUS-056-50794-09062276

PATIENT
  Sex: Female

DRUGS (3)
  1. VIDAZA [Suspect]
     Route: 065
     Dates: end: 20090621
  2. IMUREL [Concomitant]
     Indication: CROHN'S DISEASE
     Route: 065
  3. NEULASTA [Concomitant]
     Indication: DRUG USE FOR UNKNOWN INDICATION
     Route: 065

REACTIONS (6)
  - HEPATIC FAILURE [None]
  - HYPERSENSITIVITY [None]
  - MULTI-ORGAN FAILURE [None]
  - NEUTROPENIA [None]
  - PYREXIA [None]
  - SHOCK [None]
